FAERS Safety Report 4628693-4 (Version None)
Quarter: 2005Q1

REPORT INFORMATION
  Report Type: 
  Country: None (occurrence: None)
  Receive Date: 20050107
  Receipt Date: 20040908
  Transmission Date: 20050727
  Serious: No
  Sender: FDA-Public Use
  Company Number: 234440K04USA

PATIENT
  Age: 34 Year
  Sex: Female

DRUGS (2)
  1. REBIF [Suspect]
     Indication: MULTIPLE SCLEROSIS
     Dosage: 22 MCG, 3 IN 1 WEEKS
     Dates: start: 20040825
  2. XANAX [Concomitant]

REACTIONS (15)
  - ACNE [None]
  - ASTHENIA [None]
  - CHILLS [None]
  - DYSTONIA [None]
  - HEADACHE [None]
  - HYPERHIDROSIS [None]
  - HYPERTONIA [None]
  - INFLUENZA LIKE ILLNESS [None]
  - INJECTION SITE IRRITATION [None]
  - MUSCLE SPASMS [None]
  - MUSCULOSKELETAL STIFFNESS [None]
  - NAUSEA [None]
  - PAIN IN EXTREMITY [None]
  - RASH MACULO-PAPULAR [None]
  - URINARY INCONTINENCE [None]
